FAERS Safety Report 14681043 (Version 2)
Quarter: 2018Q2

REPORT INFORMATION
  Report Type: Spontaneous
  Country: IT (occurrence: IT)
  Receive Date: 20180326
  Receipt Date: 20180423
  Transmission Date: 20180711
  Serious: Yes (Other)
  Sender: FDA-Public Use
  Company Number: IT-ELI_LILLY_AND_COMPANY-IT201803006684

PATIENT
  Age: 63 Year
  Sex: Male

DRUGS (13)
  1. TARDYFER [Concomitant]
     Active Substance: FERROUS SULFATE
     Dosage: UNK UNK, UNKNOWN
     Route: 065
  2. LASIX [Concomitant]
     Active Substance: FUROSEMIDE
     Dosage: 750 MG, UNKNOWN
     Route: 065
  3. CARDIOASPIRIN [Concomitant]
     Active Substance: ASPIRIN
     Dosage: UNK UNK, UNKNOWN
     Route: 065
  4. HUMALOG [Suspect]
     Active Substance: INSULIN LISPRO
     Indication: DIABETES MELLITUS
     Dosage: 38 IU, DAILY
     Route: 058
  5. TRIATEC                            /00116401/ [Concomitant]
     Active Substance: ACETAMINOPHEN\CODEINE PHOSPHATE
     Dosage: UNK UNK, UNKNOWN
     Route: 065
  6. TRINIPLAS [Concomitant]
     Active Substance: NITROGLYCERIN
     Dosage: 10 MG, UNKNOWN
     Route: 065
  7. CORLENTOR [Concomitant]
     Active Substance: IVABRADINE HYDROCHLORIDE
     Dosage: UNK UNK, UNKNOWN
     Route: 065
  8. INSULIN GLARGINE [Suspect]
     Active Substance: INSULIN GLARGINE
     Indication: DIABETES MELLITUS
     Dosage: 36 IU, DAILY
     Route: 058
  9. TRIOREG [Concomitant]
     Dosage: UNK UNK, UNKNOWN
     Route: 065
  10. AXAGON                             /01479301/ [Concomitant]
     Active Substance: ESOMEPRAZOLE
     Dosage: UNK UNK, UNKNOWN
     Route: 065
  11. LUVION                             /00252501/ [Concomitant]
     Active Substance: CANRENOIC ACID
     Dosage: UNK UNK, UNKNOWN
     Route: 065
  12. NORVASC [Concomitant]
     Active Substance: AMLODIPINE BESYLATE
     Dosage: UNK UNK, UNKNOWN
     Route: 065
  13. CARVIPRESS [Concomitant]
     Active Substance: CARVEDILOL
     Dosage: 25 MG, UNKNOWN
     Route: 065

REACTIONS (4)
  - Hyperglycaemia [Recovering/Resolving]
  - Fall [Recovering/Resolving]
  - Sopor [Recovering/Resolving]
  - Head injury [Unknown]

NARRATIVE: CASE EVENT DATE: 20180306
